FAERS Safety Report 4619584-3 (Version None)
Quarter: 2005Q2

REPORT INFORMATION
  Report Type: 
  Country: None (occurrence: None)
  Receive Date: 20050321
  Receipt Date: 20040608
  Transmission Date: 20051028
  Serious: Yes (Other)
  Sender: FDA-Public Use
  Company Number: 2004-06-0622

PATIENT
  Sex: Male

DRUGS (2)
  1. PEG-INTRON [Suspect]
     Indication: HEPATITIS
     Dosage: SUBCUTANEOUS
     Route: 058
     Dates: start: 20040201
  2. COPEGUS [Suspect]
     Indication: HEPATITIS
     Dosage: ORAL
     Route: 048
     Dates: start: 20040201

REACTIONS (18)
  - ANAEMIA [None]
  - ANGER [None]
  - ARTHRALGIA [None]
  - CONFUSIONAL STATE [None]
  - DERMATITIS [None]
  - DYSGEUSIA [None]
  - DYSPNOEA [None]
  - FATIGUE [None]
  - INSOMNIA [None]
  - MEMORY IMPAIRMENT [None]
  - MOOD SWINGS [None]
  - NAUSEA [None]
  - NERVOUSNESS [None]
  - PAIN [None]
  - PANIC ATTACK [None]
  - PARANOIA [None]
  - VOMITING [None]
  - WEIGHT DECREASED [None]
